FAERS Safety Report 10389040 (Version 1)
Quarter: 2014Q1

REPORT INFORMATION
  Report Type: Spontaneous
  Country: US (occurrence: None)
  Receive Date: 20140306
  Receipt Date: 20140306
  Transmission Date: 20141002
  Serious: Yes (Hospitalization)
  Sender: FDA-Public Use
  Company Number: 163-21880-13104416

PATIENT
  Age: 66 Year
  Sex: Male
  Weight: 81.19 kg

DRUGS (8)
  1. REVLIMID (LENALIDOMIDE) (25 MILLIGRAM, CAPSULES) [Suspect]
     Indication: PLASMA CELL MYELOMA
     Dosage: 25 MG, 14 IN 14 D, PO
     Route: 048
     Dates: start: 20131002
  2. METFORMIN (METFORMIN) [Concomitant]
  3. MERCAPTOPURINE (MERCAPTOPURINE) [Concomitant]
  4. AMLODIPINE (AMLODIPINE) [Concomitant]
  5. METOPROLOL (METOPROLOL) [Concomitant]
  6. PRAVASTATIN (PRAVASTATIN) [Concomitant]
  7. FERROUS SULFATE (FERROUS SULFATE) [Concomitant]
  8. ACYCLOVIR (ACICLOVIR) [Concomitant]

REACTIONS (6)
  - Syncope [None]
  - Hyperhidrosis [None]
  - Dizziness [None]
  - Asthenia [None]
  - Pyrexia [None]
  - Blood pressure decreased [None]
